FAERS Safety Report 18055360 (Version 1)
Quarter: 2020Q3

REPORT INFORMATION
  Report Type: Spontaneous
  Country: CN (occurrence: CN)
  Receive Date: 20200722
  Receipt Date: 20200722
  Transmission Date: 20201103
  Serious: Yes (Other)
  Sender: FDA-Public Use
  Company Number: CN-PFIZER INC-2020275694

PATIENT
  Age: 71 Year
  Sex: Male

DRUGS (5)
  1. CEFOPERAZONE SODIUM AND SULBACTAM SODIUM [Concomitant]
     Active Substance: CEFOPERAZONE SODIUM\SULBACTAM SODIUM
     Dosage: 3 G, 3X/DAY
     Route: 041
     Dates: start: 20181119, end: 20181128
  2. VORICONAZOLE. [Suspect]
     Active Substance: VORICONAZOLE
     Indication: FUNGAL INFECTION
     Dosage: 0.2 G, 2X/DAY
     Route: 048
     Dates: start: 20181201, end: 20181203
  3. METRONIDAZOLE. [Concomitant]
     Active Substance: METRONIDAZOLE
     Dosage: 100 ML, 3X/DAY
     Route: 041
     Dates: start: 20181119, end: 20181128
  4. IMIPENEM [Concomitant]
     Active Substance: IMIPENEM
     Indication: ANTI-INFECTIVE THERAPY
     Dosage: 0.5 G, 4X/DAY
     Dates: start: 20181128
  5. ATORVASTATIN CALCIUM. [Interacting]
     Active Substance: ATORVASTATIN CALCIUM
     Indication: CORONARY ARTERY DISEASE
     Dosage: 20 MG, 1X/DAY (ONCE EVERY NIGHT)
     Route: 048
     Dates: start: 201811, end: 20181205

REACTIONS (4)
  - Drug interaction [Recovering/Resolving]
  - Blood creatine phosphokinase increased [Recovering/Resolving]
  - Hepatic enzyme increased [Recovering/Resolving]
  - Liver injury [Recovering/Resolving]

NARRATIVE: CASE EVENT DATE: 201812
